FAERS Safety Report 22987949 (Version 2)
Quarter: 2023Q4

REPORT INFORMATION
  Report Type: Report from Study
  Country: EG (occurrence: EG)
  Receive Date: 20230926
  Receipt Date: 20231020
  Transmission Date: 20240109
  Serious: Yes (Other)
  Sender: FDA-Public Use
  Company Number: EG-JNJFOC-20230945261

PATIENT
  Age: 37 Year
  Sex: Male
  Weight: 55 kg

DRUGS (5)
  1. BORTEZOMIB [Suspect]
     Active Substance: BORTEZOMIB
     Indication: Plasma cell myeloma
     Dosage: UNK
     Route: 065
  2. BORTEZOMIB [Suspect]
     Active Substance: BORTEZOMIB
     Indication: Prophylaxis
     Dosage: 3.5 MILLIGRAM, Q2WEEKS
     Route: 058
  3. EPREX [Concomitant]
     Active Substance: ERYTHROPOIETIN
     Dosage: 4000 MILLIGRAM
     Route: 065
  4. FOLIC ACID [Concomitant]
     Active Substance: FOLIC ACID
     Dosage: UNK
     Route: 065
  5. DELTAVIT B12 [Concomitant]
     Indication: Product used for unknown indication
     Dosage: UNK
     Route: 065

REACTIONS (6)
  - Anaemia [Recovering/Resolving]
  - Hypercalcaemia [Unknown]
  - Blood creatinine increased [Recovering/Resolving]
  - Dizziness [Not Recovered/Not Resolved]
  - Vomiting [Not Recovered/Not Resolved]
  - Drug ineffective [Unknown]

NARRATIVE: CASE EVENT DATE: 20230101
